FAERS Safety Report 17810586 (Version 2)
Quarter: 2020Q2

REPORT INFORMATION
  Report Type: Report from Study
  Country: GB (occurrence: GB)
  Receive Date: 20200521
  Receipt Date: 20200526
  Transmission Date: 20200714
  Serious: Yes (Other)
  Sender: FDA-Public Use
  Company Number: GB-TEVA-2020-GB-1238451

PATIENT
  Sex: Male

DRUGS (1)
  1. COPAXONE [Suspect]
     Active Substance: GLATIRAMER ACETATE
     Indication: MULTIPLE SCLEROSIS
     Route: 058
     Dates: start: 20170915

REACTIONS (7)
  - Fall [Recovering/Resolving]
  - Paraesthesia [Recovering/Resolving]
  - Sensory disturbance [Recovering/Resolving]
  - Sensory loss [Recovering/Resolving]
  - Blindness unilateral [Recovering/Resolving]
  - Multiple sclerosis relapse [Unknown]
  - Dyschromatopsia [Recovering/Resolving]

NARRATIVE: CASE EVENT DATE: 2020
